FAERS Safety Report 5916951-2 (Version None)
Quarter: 2008Q4

REPORT INFORMATION
  Report Type: 
  Country: None (occurrence: None)
  Receive Date: 20081009
  Receipt Date: 20080926
  Transmission Date: 20090506
  Serious: Yes (Hospitalization, Other)
  Sender: FDA-Public Use
  Company Number: 2008S1017507

PATIENT
  Age: 55 Year
  Sex: Female
  Weight: 97.5234 kg

DRUGS (5)
  1. LEVOTHYROXINE SODIUM TABLETS, USP (175 UG) [Suspect]
     Indication: HYPOTHYROIDISM
     Dosage: 175 UG;DAILY;ORAL
     Route: 048
     Dates: start: 20080623, end: 20080628
  2. LISINOPRIL AND HYDROCHLOROTHIAZIDE [Concomitant]
  3. KLOR-CON [Concomitant]
  4. LOVASTATIN [Concomitant]
  5. ASPIRIN [Concomitant]

REACTIONS (4)
  - CHEST DISCOMFORT [None]
  - DRUG DISPENSING ERROR [None]
  - HEART RATE INCREASED [None]
  - OVERDOSE [None]
